FAERS Safety Report 7487766-1 (Version None)
Quarter: 2011Q2

REPORT INFORMATION
  Report Type: 
  Country: None (occurrence: None)
  Receive Date: 20110518
  Receipt Date: 20110505
  Transmission Date: 20111010
  Serious: Yes (Hospitalization)
  Sender: FDA-Public Use
  Company Number: PHHY2011NL39689

PATIENT
  Sex: Male

DRUGS (2)
  1. ZOMETA [Suspect]
     Indication: PROSTATE CANCER METASTATIC
     Dosage: 4 MG/5ML
     Dates: start: 20110410
  2. ZOMETA [Suspect]
     Dosage: 4 MG/5ML
     Route: 048
     Dates: start: 20110505

REACTIONS (2)
  - OEDEMA PERIPHERAL [None]
  - URINARY RETENTION [None]
